FAERS Safety Report 5891949-1 (Version None)
Quarter: 2008Q3

REPORT INFORMATION
  Report Type: 
  Country: None (occurrence: None)
  Receive Date: 20080918
  Receipt Date: 20080903
  Transmission Date: 20090109
  Serious: Yes (Other)
  Sender: FDA-Public Use
  Company Number: 2008EU001829

PATIENT
  Sex: Female

DRUGS (2)
  1. VESIKUR (SOLIFENACIN) TABLET, UNKNOWN [Suspect]
     Indication: BLADDER DISORDER
     Dosage: 10 MG, /D, ORAL
     Route: 048
     Dates: start: 20080101, end: 20080301
  2. BACLOFEN [Concomitant]

REACTIONS (1)
  - WEIGHT INCREASED [None]
